FAERS Safety Report 8555892-1 (Version None)
Quarter: 2012Q3

REPORT INFORMATION
  Report Type: 
  Country: None (occurrence: None)
  Receive Date: 20120801
  Receipt Date: 20120725
  Transmission Date: 20120928
  Serious: No
  Sender: FDA-Public Use
  Company Number: 2005BI003773

PATIENT
  Sex: Female
  Weight: 77 kg

DRUGS (2)
  1. AVONEX [Suspect]
     Indication: MULTIPLE SCLEROSIS
     Route: 030
     Dates: start: 20040514, end: 20040701
  2. AVONEX [Suspect]
     Route: 030
     Dates: start: 20040701, end: 20050905

REACTIONS (4)
  - INFLUENZA LIKE ILLNESS [None]
  - THYROID FUNCTION TEST ABNORMAL [None]
  - WEIGHT INCREASED [None]
  - HYPOTHYROIDISM [None]
